FAERS Safety Report 9888989 (Version 2)
Quarter: 2014Q1

REPORT INFORMATION
  Report Type: Spontaneous
  Country: US (occurrence: US)
  Receive Date: 20140211
  Receipt Date: 20140314
  Transmission Date: 20141002
  Serious: No
  Sender: FDA-Public Use
  Company Number: US-009507513-1402USA003719

PATIENT
  Age: 26 Year
  Sex: Female
  Weight: 131.52 kg

DRUGS (2)
  1. NEXPLANON [Suspect]
     Dosage: 68 MG 1 STANDARD OF PF APPLI OF 1
     Dates: start: 20140205
  2. NEXPLANON [Suspect]
     Dosage: UNK
     Route: 059
     Dates: start: 201402

REACTIONS (2)
  - Device difficult to use [Recovered/Resolved]
  - No adverse event [Unknown]
